FAERS Safety Report 5750372-0 (Version None)
Quarter: 2008Q2

REPORT INFORMATION
  Report Type: 
  Country: None (occurrence: None)
  Receive Date: 20080528
  Receipt Date: 20080516
  Transmission Date: 20081010
  Serious: Yes (Hospitalization, Disabling, Other)
  Sender: FDA-Public Use
  Company Number: GB-TEVA-171863ISR

PATIENT
  Age: 88 Year
  Sex: Male

DRUGS (1)
  1. ALENDRONIC ACID [Suspect]
     Indication: OSTEOPOROSIS
     Route: 048
     Dates: start: 20080414

REACTIONS (5)
  - BENIGN OESOPHAGEAL NEOPLASM [None]
  - DEHYDRATION [None]
  - OESOPHAGEAL STENOSIS [None]
  - VOMITING [None]
  - WEIGHT DECREASED [None]
